FAERS Safety Report 7892441-5 (Version None)
Quarter: 2011Q4

REPORT INFORMATION
  Report Type: 
  Country: None (occurrence: None)
  Receive Date: 20111104
  Receipt Date: 20110726
  Transmission Date: 20120403
  Serious: Yes (Death, Hospitalization, Other)
  Sender: FDA-Public Use
  Company Number: US-BAYER-201041810NA

PATIENT
  Age: 54 Year
  Sex: Male
  Weight: 85 kg

DRUGS (17)
  1. COZAAR [Concomitant]
     Dosage: 100 MG, ONCE
     Route: 048
     Dates: end: 20021013
  2. LASIX [Concomitant]
     Dosage: 80 MG, TID
     Route: 048
  3. TOPROL-XL [Concomitant]
     Dosage: 25 MG, ONCE
     Route: 048
  4. ANCEF [Concomitant]
     Dosage: 500 MG, ONCE
     Route: 042
     Dates: start: 20020806
  5. INSULIN [Concomitant]
     Dosage: 20 UNITS MORNINGS, 10 UNITS EVENINGS
     Route: 058
  6. TRASYLOL [Suspect]
     Indication: CORONARY ARTERY BYPASS
     Dosage: 200 ML, PUMP PRIME, 50 CC/HR
     Route: 042
     Dates: start: 20021015, end: 20021015
  7. AMIODARONE HCL [Concomitant]
     Dosage: 400 MG, TID
     Route: 048
     Dates: start: 20021011
  8. HEPARIN [Concomitant]
     Dosage: 5000 U, UNK
     Route: 042
     Dates: start: 20020806
  9. VANCOMYCIN [Concomitant]
     Dosage: 1 G, ONCE
     Route: 042
     Dates: start: 20021015
  10. ZINACEF [Concomitant]
     Dosage: 750 MG, ONCE
     Route: 042
     Dates: start: 20021015
  11. FRESH FROZEN PLASMA [Concomitant]
     Dosage: 2 U, UNK
     Route: 042
     Dates: start: 20021015
  12. RED BLOOD CELLS [Concomitant]
     Dosage: 5 U, UNK
     Route: 042
     Dates: start: 20021015
  13. PLATELETS [Concomitant]
     Dosage: 2 U, UNK
     Route: 042
     Dates: start: 20021015
  14. PROTAMINE SULFATE [Concomitant]
     Dosage: 300 MG, UNK
     Route: 042
     Dates: start: 20021015, end: 20021015
  15. DIGOXIN [Concomitant]
     Dosage: 0.125 MG, ONCE
     Route: 048
  16. ACETYLSALICYLIC ACID SRT [Concomitant]
     Dosage: 325 MG, ONCE
     Route: 048
  17. LOVENOX [Concomitant]
     Dosage: 60 MG, BID
     Route: 058
     Dates: start: 20021013

REACTIONS (12)
  - STRESS [None]
  - FEAR [None]
  - RENAL FAILURE [None]
  - PAIN [None]
  - ANXIETY [None]
  - RENAL IMPAIRMENT [None]
  - RENAL INJURY [None]
  - DEATH [None]
  - MULTI-ORGAN FAILURE [None]
  - EMOTIONAL DISTRESS [None]
  - UNEVALUABLE EVENT [None]
  - INJURY [None]
